FAERS Safety Report 7031488-8 (Version None)
Quarter: 2010Q4

REPORT INFORMATION
  Report Type: 
  Country: None (occurrence: None)
  Receive Date: 20101005
  Receipt Date: 20101005
  Transmission Date: 20110411
  Serious: Yes (Hospitalization)
  Sender: FDA-Public Use
  Company Number: None

PATIENT
  Sex: Female
  Weight: 62.72 kg

DRUGS (1)
  1. RITUXIMAB (MOAB C2B8 ANTICD20, CHIMERIC) [Suspect]
     Dosage: 652.5 MG

REACTIONS (12)
  - APATHY [None]
  - CARDIOPULMONARY FAILURE [None]
  - CONDITION AGGRAVATED [None]
  - DEPRESSION [None]
  - ENCEPHALITIS [None]
  - ENCEPHALOPATHY [None]
  - LEUKOENCEPHALOPATHY [None]
  - LYMPHOMA [None]
  - METASTASES TO CENTRAL NERVOUS SYSTEM [None]
  - SEPSIS [None]
  - VIRAL INFECTION [None]
  - WEIGHT DECREASED [None]
